FAERS Safety Report 5799417-2 (Version None)
Quarter: 2008Q3

REPORT INFORMATION
  Report Type: 
  Country: None (occurrence: None)
  Receive Date: 20080703
  Receipt Date: 20080629
  Transmission Date: 20090109
  Serious: Yes (Other)
  Sender: FDA-Public Use
  Company Number: US-PFIZER INC-2008054687

PATIENT
  Sex: Female
  Weight: 77.1 kg

DRUGS (5)
  1. DETROL LA [Suspect]
     Indication: HYPERTONIC BLADDER
  2. PROTONIX [Concomitant]
  3. ATENOLOL [Concomitant]
  4. ACTOS [Concomitant]
  5. GLIPIZIDE [Concomitant]

REACTIONS (2)
  - FAECES DISCOLOURED [None]
  - GASTROINTESTINAL HAEMORRHAGE [None]
